FAERS Safety Report 17478164 (Version 1)
Quarter: 2020Q1

REPORT INFORMATION
  Report Type: Spontaneous
  Country: US (occurrence: US)
  Receive Date: 20200228
  Receipt Date: 20200228
  Transmission Date: 20200409
  Serious: Yes (Other)
  Sender: FDA-Public Use
  Company Number: US-BAYER-2020-030884

PATIENT
  Age: 74 Year
  Sex: Female

DRUGS (2)
  1. ACETYLSALICYLIC ACID [Suspect]
     Active Substance: ASPIRIN
  2. OXYGEN. [Concomitant]
     Active Substance: OXYGEN
     Dosage: FOUR LITERS PER MINUTE

REACTIONS (1)
  - Lower gastrointestinal haemorrhage [None]
